FAERS Safety Report 24646274 (Version 2)
Quarter: 2025Q3

REPORT INFORMATION
  Report Type: Report from Study
  Country: US (occurrence: US)
  Receive Date: 20241121
  Receipt Date: 20250717
  Transmission Date: 20251020
  Serious: Yes (Hospitalization)
  Sender: TAKEDA
  Company Number: US-TAKEDA-US202030277

PATIENT
  Age: 57 Year
  Sex: Female

DRUGS (2)
  1. HUMAN IMMUNOGLOBULIN G\HYALURONIDASE RECOMBINANT HUMAN [Suspect]
     Active Substance: HUMAN IMMUNOGLOBULIN G\HYALURONIDASE (HUMAN RECOMBINANT)
     Indication: Primary immunodeficiency syndrome
  2. HUMAN IMMUNOGLOBULIN G\HYALURONIDASE RECOMBINANT HUMAN [Suspect]
     Active Substance: HUMAN IMMUNOGLOBULIN G\HYALURONIDASE (HUMAN RECOMBINANT)
     Indication: IgG deficiency

REACTIONS (8)
  - Eyelid disorder [Unknown]
  - Exostosis [Not Recovered/Not Resolved]
  - Blister [Unknown]
  - Contusion [Unknown]
  - Red blood cell count increased [Unknown]
  - Fatigue [Unknown]
  - Muscle strain [Unknown]
  - Post procedural discomfort [Unknown]

NARRATIVE: CASE EVENT DATE: 20200915
